FAERS Safety Report 4515809-3 (Version None)
Quarter: 2004Q4

REPORT INFORMATION
  Report Type: 
  Country: None (occurrence: None)
  Receive Date: 20041001
  Receipt Date: 20030825
  Transmission Date: 20050328
  Serious: Yes (Other)
  Sender: FDA-Public Use
  Company Number: 000039

PATIENT
  Sex: Female

DRUGS (3)
  1. MEDROXYPROGESTERONE ACETATE [Suspect]
     Dosage: ORAL
     Route: 048
  2. PREMARIN [Suspect]
  3. MEDROXYPROGESTERONE ACETATE [Suspect]

REACTIONS (1)
  - CEREBROVASCULAR ACCIDENT [None]
